FAERS Safety Report 20783113 (Version 1)
Quarter: 2022Q2

REPORT INFORMATION
  Report Type: Spontaneous
  Country: CZ (occurrence: CZ)
  Receive Date: 20220504
  Receipt Date: 20220504
  Transmission Date: 20220721
  Serious: Yes (Hospitalization, Other)
  Sender: FDA-Public Use
  Company Number: CZ-BoehringerIngelheim-2022-BI-167344

PATIENT
  Age: 73 Year
  Sex: Male
  Weight: 126 kg

DRUGS (3)
  1. PRADAXA [Suspect]
     Active Substance: DABIGATRAN ETEXILATE MESYLATE
     Indication: Atrial fibrillation
     Route: 048
  2. TAMSULOSIN [Concomitant]
     Active Substance: TAMSULOSIN
     Indication: Product used for unknown indication
  3. FINASTERIDE [Concomitant]
     Active Substance: FINASTERIDE
     Indication: Product used for unknown indication

REACTIONS (4)
  - Aneurysm [Recovered/Resolved]
  - Anaemia [Recovered/Resolved]
  - Renal neoplasm [Recovered/Resolved]
  - Haematuria [Recovered/Resolved]

NARRATIVE: CASE EVENT DATE: 20180101
